FAERS Safety Report 17562924 (Version 2)
Quarter: 2020Q2

REPORT INFORMATION
  Report Type: Spontaneous
  Country: DE (occurrence: DE)
  Receive Date: 20200319
  Receipt Date: 20200410
  Transmission Date: 20200713
  Serious: Yes (Other)
  Sender: FDA-Public Use
  Company Number: NVSC2020DE074515

PATIENT
  Sex: Female

DRUGS (2)
  1. XGEVA [Concomitant]
     Active Substance: DENOSUMAB
     Indication: BREAST CANCER
     Dosage: UNK
     Route: 065
     Dates: start: 20130823
  2. LETROZOLE. [Suspect]
     Active Substance: LETROZOLE
     Indication: BREAST CANCER
     Dosage: UNK
     Route: 065
     Dates: start: 20150812

REACTIONS (5)
  - Osteosclerosis [Unknown]
  - Metastases to lung [Unknown]
  - Metastases to spine [Unknown]
  - Metastases to bone [Unknown]
  - Sinusitis [Unknown]

NARRATIVE: CASE EVENT DATE: 20151103
